FAERS Safety Report 6881424-X (Version None)
Quarter: 2010Q3

REPORT INFORMATION
  Report Type: 
  Country: None (occurrence: None)
  Receive Date: 20100728
  Receipt Date: 20100728
  Transmission Date: 20110219
  Serious: Yes (Other)
  Sender: FDA-Public Use
  Company Number: None

PATIENT
  Sex: Female
  Weight: 69.4003 kg

DRUGS (1)
  1. BIAXIN [Suspect]
     Indication: SINUSITIS
     Dosage: 500MG BID PO
     Route: 048
     Dates: start: 20100723, end: 20100724

REACTIONS (6)
  - ANAL PRURITUS [None]
  - DIARRHOEA [None]
  - NAUSEA [None]
  - PRURITUS GENERALISED [None]
  - STOMATITIS [None]
  - VULVOVAGINAL MYCOTIC INFECTION [None]
